FAERS Safety Report 12508420 (Version 2)
Quarter: 2016Q3

REPORT INFORMATION
  Report Type: Spontaneous
  Country: FI (occurrence: FI)
  Receive Date: 20160629
  Receipt Date: 20160706
  Transmission Date: 20161109
  Serious: Yes (Hospitalization)
  Sender: FDA-Public Use
  Company Number: FI-PFIZER INC-2016320304

PATIENT
  Age: 63 Year
  Sex: Male

DRUGS (4)
  1. RAMIPRIL. [Suspect]
     Active Substance: RAMIPRIL
     Dosage: 2.5 MG, DAILY
     Route: 048
  2. PREDNISOLONE. [Suspect]
     Active Substance: PREDNISOLONE
     Indication: FIBROMYALGIA
     Dosage: 5 MG, DAILY
     Route: 065
  3. ROSUVASTATIN CALCIUM. [Suspect]
     Active Substance: ROSUVASTATIN CALCIUM
     Dosage: 10 MG, DAILY
     Route: 048
  4. BISOPROLOL [Suspect]
     Active Substance: BISOPROLOL
     Dosage: 2.5 MG, DAILY
     Route: 065

REACTIONS (12)
  - Photophobia [Unknown]
  - Gaze palsy [Unknown]
  - Nausea [Unknown]
  - Fatigue [Unknown]
  - Seizure [Unknown]
  - Headache [Unknown]
  - Eyelid ptosis [Unknown]
  - Muscular weakness [Unknown]
  - Musculoskeletal stiffness [Unknown]
  - Pituitary tumour benign [Unknown]
  - Hyponatraemia [Unknown]
  - Visual impairment [Unknown]
